FAERS Safety Report 7679144-7 (Version None)
Quarter: 2011Q3

REPORT INFORMATION
  Report Type: 
  Country: None (occurrence: None)
  Receive Date: 20110812
  Receipt Date: 20110729
  Transmission Date: 20111222
  Serious: Yes (Hospitalization)
  Sender: FDA-Public Use
  Company Number: US-ELI_LILLY_AND_COMPANY-US201106001800

PATIENT
  Sex: Female

DRUGS (20)
  1. FORTEO [Suspect]
     Dosage: 20 UG, QD
  2. CRESTOR [Concomitant]
     Dosage: 5 MG, QD
  3. EVISTA [Suspect]
     Dosage: 60 MG, UNK
  4. XOPENEX [Concomitant]
     Route: 055
  5. AMBIEN [Concomitant]
     Indication: SLEEP DISORDER
     Dosage: 10 MG, QD
  6. DECADRON [Concomitant]
  7. FORTEO [Suspect]
     Indication: OSTEOPOROSIS
     Dosage: 20 UG, QD
  8. OXYCONTIN [Concomitant]
     Dosage: 40 MG, TID
  9. ESTRACE [Concomitant]
     Dosage: 2 MG, QD
  10. POTASSIUM CHLORIDE [Concomitant]
     Dosage: UNK, QD
  11. FORTEO [Suspect]
     Dosage: 20 UG, QD
  12. VALIUM [Concomitant]
     Indication: DEPRESSION
     Dosage: 5 MG, TID
  13. PROTONIX [Concomitant]
     Dosage: 40 MG, QD
  14. FORTEO [Suspect]
     Dosage: 20 UG, QD
  15. VITAMIN D [Concomitant]
     Dosage: UNK, BID
     Route: 048
  16. ROXICODONE [Concomitant]
     Dosage: 30 MG, PRN
  17. SPIRIVA [Concomitant]
     Dosage: UNK, QD
     Route: 055
  18. VITAMIN B-12 [Concomitant]
  19. CALCIUM CARBONATE [Concomitant]
     Dosage: 600 MG, UNK
  20. PREDNISONE [Concomitant]
     Dosage: 7.5 MG, QD

REACTIONS (16)
  - BONE PAIN [None]
  - PAIN IN EXTREMITY [None]
  - FATIGUE [None]
  - FLUID RETENTION [None]
  - VEIN DISORDER [None]
  - WOUND SECRETION [None]
  - HEART RATE INCREASED [None]
  - ABDOMINAL PAIN UPPER [None]
  - DYSPNOEA [None]
  - CONTUSION [None]
  - BONE DISORDER [None]
  - ABDOMINAL PAIN [None]
  - INFLUENZA LIKE ILLNESS [None]
  - INJECTION SITE HAEMATOMA [None]
  - ARTHRALGIA [None]
  - HERNIA [None]
